FAERS Safety Report 5937772-0 (Version None)
Quarter: 2008Q4

REPORT INFORMATION
  Report Type: 
  Country: None (occurrence: None)
  Receive Date: 20081031
  Receipt Date: 20081021
  Transmission Date: 20090506
  Serious: Yes (Congenital Anomaly)
  Sender: FDA-Public Use
  Company Number: US-ABBOTT-07P-163-0355435-00

PATIENT
  Sex: Female
  Weight: 68 kg

DRUGS (12)
  1. HUMIRA [Suspect]
     Indication: CROHN'S DISEASE
     Route: 058
     Dates: start: 20050524, end: 20060425
  2. COMMERCIAL HUMIRA [Concomitant]
     Indication: CROHN'S DISEASE
  3. VITAMIN AND MINERAL PRENATAL SUPPLEMENT W/ FOLIC ACID CAP [Concomitant]
     Indication: MEDICAL DIET
     Route: 048
  4. EUGYNON [Concomitant]
     Indication: CONTRACEPTION
     Route: 048
     Dates: start: 19980101
  5. MERCAPTOPURINE [Concomitant]
     Indication: CROHN'S DISEASE
     Route: 048
     Dates: start: 20060401, end: 20060510
  6. MERCAPTOPURINE [Concomitant]
     Route: 048
     Dates: start: 20060510, end: 20061227
  7. IBUPROFEN TABLETS [Concomitant]
     Indication: BACK PAIN
     Dosage: 3 PILLS TOTAL
     Route: 048
     Dates: start: 20060401, end: 20061231
  8. MERCAPTOPURINE [Concomitant]
     Indication: CROHN'S DISEASE
     Dates: start: 20010401
  9. BUDESONIDE [Concomitant]
     Indication: CROHN'S DISEASE
     Dates: start: 20050314, end: 20050718
  10. BUDESONIDE [Concomitant]
     Dates: start: 20050819
  11. DICYCLOMINE HCL [Concomitant]
     Indication: ABDOMINAL PAIN
  12. ACETAMINOPHEN [Concomitant]
     Indication: ABDOMINAL PAIN

REACTIONS (5)
  - CAESAREAN SECTION [None]
  - DRUG DOSE OMISSION [None]
  - DRUG EXPOSURE DURING PREGNANCY [None]
  - FOOT FRACTURE [None]
  - VENTRICULAR SEPTAL DEFECT [None]
